FAERS Safety Report 18913742 (Version 1)
Quarter: 2021Q1

REPORT INFORMATION
  Report Type: Spontaneous
  Country: JP (occurrence: JP)
  Receive Date: 20210218
  Receipt Date: 20210218
  Transmission Date: 20210420
  Serious: Yes (Other)
  Sender: FDA-Public Use
  Company Number: JP-JNJFOC-20210218296

PATIENT
  Age: 75 Year
  Sex: Male

DRUGS (4)
  1. OPSUMIT [Suspect]
     Active Substance: MACITENTAN
     Indication: PULMONARY ARTERIAL HYPERTENSION
     Route: 048
     Dates: start: 202005
  2. ADCIRCA [Suspect]
     Active Substance: TADALAFIL
     Indication: PULMONARY ARTERIAL HYPERTENSION
     Route: 048
     Dates: start: 202005
  3. UPTRAVI [Suspect]
     Active Substance: SELEXIPAG
     Route: 048
     Dates: start: 202005
  4. UPTRAVI [Suspect]
     Active Substance: SELEXIPAG
     Indication: PULMONARY ARTERIAL HYPERTENSION
     Route: 048
     Dates: start: 202005, end: 202005

REACTIONS (3)
  - Myalgia [Recovered/Resolved]
  - Headache [Recovered/Resolved]
  - Facial paralysis [Recovered/Resolved]

NARRATIVE: CASE EVENT DATE: 202005
